FAERS Safety Report 20842349 (Version 3)
Quarter: 2022Q3

REPORT INFORMATION
  Report Type: Spontaneous
  Country: US (occurrence: US)
  Receive Date: 20220518
  Receipt Date: 20220914
  Transmission Date: 20221026
  Serious: No
  Sender: FDA-Public Use
  Company Number: US-BRISTOL-MYERS SQUIBB COMPANY-2022-025285

PATIENT
  Age: 14 Year
  Sex: Female

DRUGS (2)
  1. SPRYCEL [Suspect]
     Active Substance: DASATINIB
     Indication: Chronic myeloid leukaemia
     Dosage: BATCH NUMBER: NP3241A?EXPIRY DATE: 31-DEC-2025
     Route: 048
     Dates: start: 20211224
  2. SPRYCEL [Suspect]
     Active Substance: DASATINIB
     Route: 048
     Dates: start: 20211225

REACTIONS (8)
  - Feeling abnormal [Unknown]
  - Memory impairment [Unknown]
  - Abdominal pain upper [Unknown]
  - Fatigue [Unknown]
  - Anaemia [Unknown]
  - Pallor [Unknown]
  - Nausea [Unknown]
  - Constipation [Unknown]

NARRATIVE: CASE EVENT DATE: 20211224
